FAERS Safety Report 9468037 (Version 3)
Quarter: 2013Q3

REPORT INFORMATION
  Report Type: Spontaneous
  Country: AR (occurrence: AR)
  Receive Date: 20130821
  Receipt Date: 20130830
  Transmission Date: 20140515
  Serious: Yes (Hospitalization)
  Sender: FDA-Public Use
  Company Number: AR-PFIZER INC-2013238846

PATIENT
  Age: 55 Year
  Sex: Male

DRUGS (1)
  1. INLYTA [Suspect]
     Indication: RENAL CELL CARCINOMA
     Dosage: UNK
     Dates: start: 20130722

REACTIONS (7)
  - Vomiting [Recovered/Resolved]
  - Bacterial infection [Recovered/Resolved]
  - Hyperhidrosis [Recovered/Resolved]
  - Pyrexia [Recovered/Resolved]
  - Asthenia [Not Recovered/Not Resolved]
  - Fatigue [Not Recovered/Not Resolved]
  - Malaise [Unknown]
